FAERS Safety Report 8171246-4 (Version None)
Quarter: 2012Q1

REPORT INFORMATION
  Report Type: 
  Country: None (occurrence: None)
  Receive Date: 20120228
  Receipt Date: 20120222
  Transmission Date: 20120608
  Serious: Yes (Other)
  Sender: FDA-Public Use
  Company Number: US-PFIZER INC-2012031865

PATIENT
  Sex: Female

DRUGS (4)
  1. LEXAPRO [Concomitant]
     Dosage: UNK
     Dates: start: 20111101
  2. LYRICA [Suspect]
     Indication: DIABETIC NEUROPATHY
  3. LYRICA [Suspect]
     Indication: NEURALGIA
     Dosage: 50 MG, 1X/DAY (BED TIME)
     Route: 048
     Dates: start: 20111101, end: 20111101
  4. ATIVAN [Concomitant]
     Dosage: UNK
     Dates: start: 20111101

REACTIONS (1)
  - GOUT [None]
